FAERS Safety Report 18433180 (Version 5)
Quarter: 2021Q1

REPORT INFORMATION
  Report Type: Spontaneous
  Country: US (occurrence: US)
  Receive Date: 20201027
  Receipt Date: 20210112
  Transmission Date: 20210419
  Serious: No
  Sender: FDA-Public Use
  Company Number: US-PFIZER INC-2020415414

PATIENT
  Age: 71 Year
  Sex: Female

DRUGS (1)
  1. IBRANCE [Suspect]
     Active Substance: PALBOCICLIB
     Indication: BREAST CANCER FEMALE
     Dosage: 125 MG

REACTIONS (6)
  - Depression [Unknown]
  - Increased appetite [Unknown]
  - Peripheral coldness [Unknown]
  - Hunger [Unknown]
  - Skin discolouration [Unknown]
  - Pain [Unknown]
